FAERS Safety Report 8727108 (Version 2)
Quarter: 2015Q2

REPORT INFORMATION
  Report Type: Report from Study
  Country: US (occurrence: US)
  Receive Date: 20120816
  Receipt Date: 20150406
  Transmission Date: 20150821
  Serious: Yes (Hospitalization)
  Sender: FDA-Public Use
  Company Number: US-ROCHE-1100947

PATIENT
  Sex: Male

DRUGS (2)
  1. ACTIVASE [Suspect]
     Active Substance: ALTEPLASE
     Indication: ACUTE MYOCARDIAL INFARCTION
     Route: 040
  2. MORPHINE SULFATE. [Concomitant]
     Active Substance: MORPHINE SULFATE
     Route: 042

REACTIONS (4)
  - Chest pain [Unknown]
  - Nausea [Unknown]
  - Ventricular tachycardia [Unknown]
  - Blood creatine phosphokinase increased [Unknown]
